FAERS Safety Report 7542839-X (Version None)
Quarter: 2011Q2

REPORT INFORMATION
  Report Type: 
  Country: None (occurrence: None)
  Receive Date: 20110606
  Receipt Date: 20110520
  Transmission Date: 20111010
  Serious: Yes (Death, Hospitalization)
  Sender: FDA-Public Use
  Company Number: 2011MA006191

PATIENT
  Age: 59 Year
  Sex: Female
  Weight: 43.9989 kg

DRUGS (17)
  1. PREDNISOLONE [Suspect]
     Dosage: 42 MG;QD;PO
     Route: 048
     Dates: start: 20020111, end: 20100924
  2. DEXAMETHASONE SODIUM PHOSPHATE [Suspect]
     Dosage: 200 MG;QD;IV
     Route: 042
     Dates: start: 20100911, end: 20100911
  3. CODEINE SULFATE [Suspect]
     Dosage: 2 G;QD;PO
     Route: 048
     Dates: start: 20100915
  4. PREDNISOLONE [Suspect]
     Dosage: 12 MG;QD
     Dates: start: 20100906, end: 20100923
  5. JUVELA NICOTINATE [Suspect]
     Dosage: 200 MG;TID;PO
     Route: 048
  6. BENIDIPINE HYDROCHLORIDE [Concomitant]
  7. KENTAN [Suspect]
     Dosage: 60 MG;BID
     Dates: start: 20041228, end: 20100905
  8. ISONIAZID [Concomitant]
  9. DICLOFENAC SODIUM [Suspect]
     Indication: PAIN
     Dosage: 50 MG;PRN;RECTAL
     Route: 054
     Dates: start: 20100706
  10. GLYCYRON [Suspect]
     Dosage: PO
     Route: 048
     Dates: start: 20100913
  11. MAGNESIUM OXIDE HEAVY [Suspect]
     Dosage: 0.5 G;BID;PO
     Route: 048
     Dates: start: 20100917
  12. OLMESARTAN MEDOXOMIL [Concomitant]
  13. SEBTET [Concomitant]
  14. CELECOXIB [Suspect]
     Indication: RHEUMATOID ARTHRITIS
     Dosage: 100 MG;BID;PO
     Route: 048
     Dates: start: 20100526, end: 20100926
  15. SULFAMETHOXAZOLE [Suspect]
     Dosage: PO
     Route: 048
     Dates: start: 20100924, end: 20100927
  16. BLINDED STUDY DRUG [Suspect]
     Indication: RHEUMATOID ARTHRITIS
     Dosage: 5 MG;BID
     Dates: start: 20100311, end: 20100818
  17. FAMOTIDINE [Concomitant]

REACTIONS (71)
  - ALPHA TUMOUR NECROSIS FACTOR INCREASED [None]
  - OXYGEN SATURATION DECREASED [None]
  - ASPARTATE AMINOTRANSFERASE INCREASED [None]
  - BLOOD ALKALINE PHOSPHATASE INCREASED [None]
  - BLOOD UREA INCREASED [None]
  - RENAL IMPAIRMENT [None]
  - HAEMOPTYSIS [None]
  - CONDITION AGGRAVATED [None]
  - PAIN [None]
  - JAUNDICE [None]
  - DISSEMINATED INTRAVASCULAR COAGULATION [None]
  - MULTI-ORGAN FAILURE [None]
  - HYPOTHYROIDISM [None]
  - THROMBOTIC MICROANGIOPATHY [None]
  - HAEMORRHAGIC DIATHESIS [None]
  - SPUTUM PURULENT [None]
  - BACTERIAL TEST POSITIVE [None]
  - BLOOD CREATININE INCREASED [None]
  - HYPOAESTHESIA [None]
  - FUNGAL TEST POSITIVE [None]
  - BLOOD IMMUNOGLOBULIN M INCREASED [None]
  - PLEURAL EFFUSION [None]
  - TUMOUR MARKER INCREASED [None]
  - MALAISE [None]
  - GASTRIC DISORDER [None]
  - RESTRICTIVE PULMONARY DISEASE [None]
  - STREPTOCOCCUS TEST POSITIVE [None]
  - BLOOD BILIRUBIN INCREASED [None]
  - PERICARDIAL EFFUSION [None]
  - ANTI-SS-A ANTIBODY POSITIVE [None]
  - URINARY SEDIMENT ABNORMAL [None]
  - LIVER DISORDER [None]
  - OEDEMA PERIPHERAL [None]
  - HEPATIC NEOPLASM [None]
  - PAINFUL RESPIRATION [None]
  - PLEURISY [None]
  - ALANINE AMINOTRANSFERASE INCREASED [None]
  - ANAEMIA [None]
  - RHEUMATOID LUNG [None]
  - CELL MARKER INCREASED [None]
  - NASOPHARYNGITIS [None]
  - RHEUMATOID ARTHRITIS [None]
  - SWELLING [None]
  - FATIGUE [None]
  - CHILLS [None]
  - LYMPHOCYTE COUNT DECREASED [None]
  - CANDIDA TEST POSITIVE [None]
  - INTESTINAL MUCOSAL HYPERTROPHY [None]
  - COLITIS ISCHAEMIC [None]
  - OLIGURIA [None]
  - INTERSTITIAL LUNG DISEASE [None]
  - DYSPNOEA EXERTIONAL [None]
  - HOT FLUSH [None]
  - PRODUCTIVE COUGH [None]
  - RALES [None]
  - THROMBOTIC THROMBOCYTOPENIC PURPURA [None]
  - PLEURAL FIBROSIS [None]
  - SURFACTANT PROTEIN INCREASED [None]
  - BRAIN NATRIURETIC PEPTIDE INCREASED [None]
  - CARDIAC DISORDER [None]
  - PNEUMOCYSTIS JIROVECI PNEUMONIA [None]
  - SENSE OF OPPRESSION [None]
  - TREMOR [None]
  - ABDOMINAL DISTENSION [None]
  - FLATULENCE [None]
  - BLOOD PRESSURE SYSTOLIC INCREASED [None]
  - NEISSERIA TEST POSITIVE [None]
  - GAMMA-GLUTAMYLTRANSFERASE INCREASED [None]
  - BLOOD LACTATE DEHYDROGENASE INCREASED [None]
  - BLOOD IMMUNOGLOBULIN G INCREASED [None]
  - ANTIMITOCHONDRIAL ANTIBODY POSITIVE [None]
